FAERS Safety Report 9478640 (Version 2)
Quarter: 2014Q1

REPORT INFORMATION
  Report Type: Spontaneous
  Country: US (occurrence: US)
  Receive Date: 20130827
  Receipt Date: 20140128
  Transmission Date: 20141002
  Serious: Yes (Hospitalization)
  Sender: FDA-Public Use
  Company Number: US-BAYER-2013-103049

PATIENT
  Age: 27 Year
  Sex: Female
  Weight: 65.76 kg

DRUGS (3)
  1. MIRENA [Suspect]
     Indication: CONTRACEPTION
     Dosage: 20 MCG/24HR, CONT
     Route: 015
     Dates: start: 20110824, end: 20110826
  2. MIRENA [Suspect]
     Indication: CONTRACEPTION
     Dosage: 20 MCG/24HR, CONT
     Route: 015
     Dates: start: 20081025, end: 20100410
  3. MOTRIN [Concomitant]
     Indication: PAIN MANAGEMENT

REACTIONS (6)
  - Uterine perforation [None]
  - Device issue [None]
  - Pain [None]
  - Injury [None]
  - Emotional distress [None]
  - Device misuse [None]
